FAERS Safety Report 13492620 (Version 2)
Quarter: 2017Q2

REPORT INFORMATION
  Report Type: Report from Study
  Country: US (occurrence: US)
  Receive Date: 20170427
  Receipt Date: 20170504
  Transmission Date: 20170830
  Serious: Yes (Hospitalization)
  Sender: FDA-Public Use
  Company Number: US-BIOGEN-2017BI00390804

PATIENT
  Sex: Female

DRUGS (1)
  1. TECFIDERA [Suspect]
     Active Substance: DIMETHYL FUMARATE
     Indication: MULTIPLE SCLEROSIS
     Dosage: MAINTENANCE DOSE
     Route: 048
     Dates: end: 20170404

REACTIONS (8)
  - Oral herpes [Unknown]
  - Liver injury [Unknown]
  - Herpes virus infection [Unknown]
  - Hepatic cyst [Unknown]
  - Urinary tract infection [Unknown]
  - Renal cyst [Unknown]
  - Rotavirus infection [Unknown]
  - T-lymphocyte count decreased [Unknown]
